FAERS Safety Report 8303454 (Version 5)
Quarter: 2018Q4

REPORT INFORMATION
  Report Type: Spontaneous
  Country: JP (occurrence: JP)
  Receive Date: 20111220
  Receipt Date: 20181010
  Transmission Date: 20190205
  Serious: Yes (Hospitalization, Other)
  Sender: FDA-Public Use
  Company Number: PHHY2011JP107576

PATIENT
  Age: 93 Year
  Sex: Female
  Weight: 51 kg

DRUGS (6)
  1. VALSARTAN AND HYDROCHLOROTHIAZIDE [Suspect]
     Active Substance: HYDROCHLOROTHIAZIDE\VALSARTAN
     Indication: HYPERTENSION
     Dosage: 1 DF, QD
     Route: 048
     Dates: start: 200911, end: 20100428
  2. MUCOSTA [Concomitant]
     Active Substance: REBAMIPIDE
     Indication: PRODUCT USED FOR UNKNOWN INDICATION
     Dosage: 300 MG, UNK
     Route: 048
  3. CALCIUM POLYSTYRENE SULFONATE [Suspect]
     Active Substance: CALCIUM POLYSTYRENE SULFONATE
     Indication: HYPERKALAEMIA
     Dosage: 75 G, UNK
     Route: 048
     Dates: start: 200808, end: 20100428
  4. GASTER [Concomitant]
     Active Substance: FAMOTIDINE
     Indication: PRODUCT USED FOR UNKNOWN INDICATION
     Dosage: 10 MG, UNK
     Route: 048
  5. METHYCOBAL [Concomitant]
     Active Substance: METHYLCOBALAMIN
     Indication: PRODUCT USED FOR UNKNOWN INDICATION
     Dosage: 1500 UG, UNK
     Route: 048
  6. ALFACALCIDOL [Suspect]
     Active Substance: ALFACALCIDOL
     Indication: FEMUR FRACTURE
     Dosage: 1 UG, QD
     Route: 048
     Dates: start: 200910, end: 20100428

REACTIONS (9)
  - Dyschezia [Recovered/Resolved]
  - Chronic kidney disease [Recovered/Resolved]
  - Blood pressure diastolic decreased [Unknown]
  - Dehydration [Unknown]
  - Metabolic alkalosis [Recovered/Resolved]
  - Abnormal faeces [Unknown]
  - Hypercalcaemia [Recovered/Resolved]
  - Hypokalaemia [Recovered/Resolved]
  - Flank pain [Recovered/Resolved]

NARRATIVE: CASE EVENT DATE: 201004
